FAERS Safety Report 24583020 (Version 2)
Quarter: 2025Q1

REPORT INFORMATION
  Report Type: Spontaneous
  Country: US (occurrence: US)
  Receive Date: 20241106
  Receipt Date: 20250226
  Transmission Date: 20250408
  Serious: No
  Sender: UCB
  Company Number: US-UCBSA-2024031314

PATIENT
  Sex: Male

DRUGS (8)
  1. LACOSAMIDE [Suspect]
     Active Substance: LACOSAMIDE
     Indication: Epilepsy
  2. LEVETIRACETAM [Suspect]
     Active Substance: LEVETIRACETAM
     Indication: Epilepsy
  3. PHENOBARBITAL [Suspect]
     Active Substance: PHENOBARBITAL
     Indication: Epilepsy
  4. FOSPHENYTOIN [Suspect]
     Active Substance: FOSPHENYTOIN
     Indication: Epilepsy
  5. TOPIRAMATE [Suspect]
     Active Substance: TOPIRAMATE
     Indication: Epilepsy
  6. VIGABATRIN [Suspect]
     Active Substance: VIGABATRIN
     Indication: Epilepsy
  7. SIROLIMUS [Suspect]
     Active Substance: SIROLIMUS
     Indication: Epilepsy
  8. CLOBAZAM [Suspect]
     Active Substance: CLOBAZAM
     Indication: Epilepsy

REACTIONS (2)
  - Off label use [Unknown]
  - Multiple-drug resistance [Unknown]
